FAERS Safety Report 25371382 (Version 1)
Quarter: 2025Q2

REPORT INFORMATION
  Report Type: Spontaneous
  Country: US (occurrence: US)
  Receive Date: 20250529
  Receipt Date: 20250529
  Transmission Date: 20250717
  Serious: Yes (Other)
  Sender: EMCURE PHARMACEUTICALS LTD
  Company Number: US-AVET LIFESCIENCES LTD-2025-AVET-000168

PATIENT

DRUGS (7)
  1. PROPOFOL [Suspect]
     Active Substance: PROPOFOL
     Indication: Biopsy heart
     Route: 065
     Dates: start: 20250512, end: 20250512
  2. DEXMEDETOMIDINE [Concomitant]
     Active Substance: DEXMEDETOMIDINE
  3. MIDAZOLAM [Concomitant]
     Active Substance: MIDAZOLAM
  4. FENTANYL [Concomitant]
     Active Substance: FENTANYL
  5. ONDANSETRON [Concomitant]
     Active Substance: ONDANSETRON
  6. PHENYLEPHRINE [Concomitant]
     Active Substance: PHENYLEPHRINE
  7. EPHEDRINE [Concomitant]
     Active Substance: EPHEDRINE

REACTIONS (3)
  - Drug ineffective [Unknown]
  - Tremor [Unknown]
  - Myoclonus [Unknown]

NARRATIVE: CASE EVENT DATE: 20250512
